FAERS Safety Report 8609143 (Version 3)
Quarter: 2012Q4

REPORT INFORMATION
  Report Type: 
  Country: BR (occurrence: BR)
  Receive Date: 20120611
  Receipt Date: 20121008
  Transmission Date: 20130627
  Serious: Yes (Hospitalization, Disabling)
  Sender: FDA-Public Use
  Company Number: BR-ASTRAZENECA-2012SE37434

PATIENT
  Age: 42 Year
  Sex: Male
  Weight: 90 kg

DRUGS (4)
  1. CRESTOR [Suspect]
     Indication: BLOOD CHOLESTEROL INCREASED
     Route: 048
     Dates: start: 2007, end: 201205
  2. CRESTOR [Suspect]
     Indication: BLOOD CHOLESTEROL INCREASED
     Route: 048
     Dates: start: 201205
  3. BRILINTA [Suspect]
     Indication: CORONARY ARTERY OCCLUSION
     Route: 048
     Dates: start: 201205
  4. EFFEXOR XR [Concomitant]
     Route: 048
     Dates: start: 2012

REACTIONS (2)
  - Coronary artery occlusion [Recovered/Resolved]
  - Tendon rupture [Not Recovered/Not Resolved]
